FAERS Safety Report 4490626-1 (Version None)
Quarter: 2004Q4

REPORT INFORMATION
  Report Type: 
  Country: None (occurrence: None)
  Receive Date: 20041028
  Receipt Date: 20041015
  Transmission Date: 20050328
  Serious: Yes (Other)
  Sender: FDA-Public Use
  Company Number: 2004-DE-05295GD

PATIENT
  Age: 33 Year
  Sex: Male

DRUGS (5)
  1. NEVIRAPINE (NEVIRAPINE) [Suspect]
     Indication: HIV INFECTION
     Dosage: 400 MG (EVERY 12 HOURS)
  2. METHADONE (METHADONE) [Suspect]
     Indication: DRUG DEPENDENCE
     Dosage: 60 MG ( IN THE MORNING ) ;  APPROX. 12 MONTHS
  3. RITONAVIR (RITONAVIR) [Suspect]
     Indication: HIV INFECTION
     Dosage: 1200 MG (EVERY 12 HOURS)
  4. ESTAVUDINE [Concomitant]
  5. INDINAVIR (INDINAVIR) [Concomitant]

REACTIONS (12)
  - ANXIETY [None]
  - DRUG WITHDRAWAL SYNDROME [None]
  - FEELING HOT AND COLD [None]
  - HYPERHIDROSIS [None]
  - LACRIMATION INCREASED [None]
  - MYDRIASIS [None]
  - PILOERECTION [None]
  - REFUSAL OF TREATMENT BY PATIENT [None]
  - RESTLESSNESS [None]
  - RHINORRHOEA [None]
  - VOMITING [None]
  - YAWNING [None]
